FAERS Safety Report 3586532 (Version 2)
Quarter: 2013Q1

REPORT INFORMATION
  Report Type: Spontaneous
  Country: AR (occurrence: AR)
  Receive Date: 20001219
  Receipt Date: 20130311
  Transmission Date: 20140127
  Serious: Yes (Death, Hospitalization)
  Sender: FDA-Public Use
  Company Number: PHBS2000AR03205

PATIENT
  Age: 45 Year
  Sex: Male

DRUGS (3)
  1. LAPENAX [Suspect]
     Indication: PSYCHOTIC DISORDER
     Route: 048
     Dates: start: 20000125, end: 20000627
  2. TEGRETOL 400 LC [Suspect]
     Dosage: 600 MG, DAILY
     Route: 048
  3. DIAZEPAM [Concomitant]
     Dosage: 20 MG, UNK

REACTIONS (6)
  - Tonic convulsion [Fatal]
  - Cardio-respiratory arrest [Fatal]
  - Apnoea [Fatal]
  - Injury [Fatal]
  - Hyperhidrosis [Fatal]
  - Agitation [Fatal]
